FAERS Safety Report 25063668 (Version 1)
Quarter: 2025Q1

REPORT INFORMATION
  Report Type: Report from Study
  Country: US (occurrence: US)
  Receive Date: 20250311
  Receipt Date: 20250311
  Transmission Date: 20250409
  Serious: Yes (Other)
  Sender: GILEAD
  Company Number: US-GILEAD-2025-0706328

PATIENT
  Age: 58 Year
  Sex: Male

DRUGS (5)
  1. SOFOSBUVIR\VELPATASVIR [Suspect]
     Active Substance: SOFOSBUVIR\VELPATASVIR
     Indication: Hepatitis C virus test positive
     Dosage: ONE TABLET TAKEN DAILY, BY MOUTH
     Route: 048
     Dates: start: 202502
  2. NORTRIPTYLINE [Concomitant]
     Active Substance: NORTRIPTYLINE
  3. MELOXICAM [Concomitant]
     Active Substance: MELOXICAM
  4. LACTULOSE [Concomitant]
     Active Substance: LACTULOSE
  5. LISINOPRIL [Concomitant]
     Active Substance: LISINOPRIL

REACTIONS (4)
  - Cerebrovascular accident [Unknown]
  - Headache [Unknown]
  - Feeling abnormal [Unknown]
  - Obstruction [Unknown]

NARRATIVE: CASE EVENT DATE: 20250201
